FAERS Safety Report 3318995 (Version 1)
Quarter: 2020Q3

REPORT INFORMATION
  Report Type: Spontaneous
  Country: US (occurrence: None)
  Receive Date: 19990730
  Receipt Date: 19990730
  Transmission Date: 20201104
  Serious: Yes (Death)
  Sender: FDA-Public Use
  Company Number: 9932278

PATIENT
  Age: 70 Year
  Sex: Female

DRUGS (2)
  1. FLUCONAZOLE. [Suspect]
     Active Substance: FLUCONAZOLE
     Indication: ANTIFUNGAL PROPHYLAXIS
     Dosage: INTRAVENOUS
     Route: 042
     Dates: start: 1999, end: 1999
  2. ALATROFLOXACIN MESYLATE. [Suspect]
     Active Substance: ALATROFLOXACIN MESYLATE
     Dosage: 200.00 MG TOTAL: INTRAVENOUS
     Route: 042
     Dates: start: 1999

REACTIONS (4)
  - Liver function test abnormal [None]
  - Dermatitis [None]
  - Amylase increased [None]
  - Hepatic failure [None]

NARRATIVE: CASE EVENT DATE: 19990618
